FAERS Safety Report 8068030-9 (Version None)
Quarter: 2012Q1

REPORT INFORMATION
  Report Type: 
  Country: None (occurrence: None)
  Receive Date: 20120124
  Receipt Date: 20110927
  Transmission Date: 20120608
  Serious: No
  Sender: FDA-Public Use
  Company Number: US-AMGEN-USASP2011049820

PATIENT
  Sex: Female

DRUGS (5)
  1. VITAMIN D [Concomitant]
     Dosage: UNK
  2. PROLIA [Suspect]
     Indication: OSTEOPOROSIS POSTMENOPAUSAL
     Dosage: 60 MG, Q6MO
     Route: 058
     Dates: start: 20110701
  3. VITAMIN C                          /00008001/ [Concomitant]
  4. CALCIUM [Concomitant]
     Dosage: UNK
  5. MULTIVITAMIN                       /00097801/ [Concomitant]

REACTIONS (6)
  - DIVERTICULITIS [None]
  - MYALGIA [None]
  - DYSPEPSIA [None]
  - ARTHRALGIA [None]
  - PAIN IN EXTREMITY [None]
  - CYSTITIS [None]
